FAERS Safety Report 6106055-0 (Version None)
Quarter: 2009Q1

REPORT INFORMATION
  Report Type: 
  Country: None (occurrence: None)
  Receive Date: 20090306
  Receipt Date: 20090303
  Transmission Date: 20090719
  Serious: Yes (Hospitalization)
  Sender: FDA-Public Use
  Company Number: DE-WYE-G03241009

PATIENT
  Age: 79 Year
  Sex: Male

DRUGS (12)
  1. VENLAFAXINE HCL [Suspect]
     Indication: DEPRESSION
     Dosage: UNKNOWN
     Route: 048
  2. VENLAFAXINE HCL [Suspect]
     Dosage: 450 MG DAILY
     Route: 048
     Dates: start: 20090105, end: 20090106
  3. VENLAFAXINE HCL [Suspect]
     Dosage: 300 MG DAILY
     Route: 048
     Dates: start: 20090107, end: 20090107
  4. ZOPICLONE [Concomitant]
     Dosage: 3.75 MG DAILY
     Route: 048
  5. SIMVASTATIN [Concomitant]
     Dosage: 40 MG DAILY
     Route: 048
  6. AMARYL [Concomitant]
     Dosage: 2.0 MG DAILY
     Route: 048
  7. MARCUMAR [Concomitant]
     Dosage: 3 MG DAILY
     Route: 048
  8. XANEF [Concomitant]
     Dosage: 5 MG DAILY
     Route: 048
  9. HYDROCHLOROTHIAZIDE [Concomitant]
     Dosage: 12.G MG DAILY
     Route: 048
  10. LAMICTAL [Suspect]
     Dosage: 75 MG DAILY
     Route: 048
     Dates: end: 20090111
  11. LAMICTAL [Suspect]
     Dosage: 100 MG DAILY
     Route: 048
     Dates: start: 20090112, end: 20090116
  12. NEXIUM [Concomitant]
     Dosage: 20 MG DAILY
     Route: 045

REACTIONS (2)
  - DELIRIUM [None]
  - MENTAL DISORDER [None]
